FAERS Safety Report 15612096 (Version 1)
Quarter: 2018Q4

REPORT INFORMATION
  Report Type: Spontaneous
  Country: GB (occurrence: GB)
  Receive Date: 20181113
  Receipt Date: 20181113
  Transmission Date: 20190205
  Serious: Yes (Other)
  Sender: FDA-Public Use
  Company Number: GB-GLAXOSMITHKLINE-GB2009000055

PATIENT
  Age: 47 Year
  Sex: Female

DRUGS (3)
  1. OMEPRAZOLE. [Concomitant]
     Active Substance: OMEPRAZOLE
     Indication: PROPHYLAXIS
     Dosage: 20 MG, BID
     Route: 048
  2. OMEPRAZOLE. [Concomitant]
     Active Substance: OMEPRAZOLE
     Indication: PROPHYLAXIS AGAINST GASTROINTESTINAL ULCER
  3. DICLOFENAC SODIUM. [Suspect]
     Active Substance: DICLOFENAC SODIUM
     Indication: PRODUCT USED FOR UNKNOWN INDICATION
     Dosage: 75 MG, BID
     Route: 048

REACTIONS (14)
  - Intestinal villi atrophy [Unknown]
  - Erythema [Unknown]
  - Gastrointestinal erosion [Unknown]
  - Gastrointestinal haemorrhage [Unknown]
  - Endoscopy abnormal [Unknown]
  - Mucosal erosion [Unknown]
  - Gastrointestinal mucosa hyperaemia [Unknown]
  - Drug interaction [Unknown]
  - Gastrointestinal mucosal disorder [Unknown]
  - Pallor [Unknown]
  - Duodenal ulcer [Unknown]
  - Gastrointestinal tract mucosal pigmentation [Unknown]
  - Gastrointestinal mucosal exfoliation [Unknown]
  - Intestinal ulcer [Unknown]
